FAERS Safety Report 5528588-8 (Version None)
Quarter: 2007Q4

REPORT INFORMATION
  Report Type: 
  Country: None (occurrence: None)
  Receive Date: 20071126
  Receipt Date: 20071030
  Transmission Date: 20080405
  Serious: Yes (Hospitalization, Disabling)
  Sender: FDA-Public Use
  Company Number: M-07-0964

PATIENT
  Age: 41 Year
  Sex: Male
  Weight: 141.0687 kg

DRUGS (4)
  1. PACERONE [Suspect]
     Indication: ATRIAL FIBRILLATION
     Dosage: 200 MG, BID, PO
     Route: 048
     Dates: end: 20050101
  2. AMIODARONE HCL [Suspect]
     Indication: ATRIAL FIBRILLATION
     Dosage: PO
     Route: 048
     Dates: start: 20020101
  3. COUMADIN [Concomitant]
  4. LANOXIN [Concomitant]

REACTIONS (3)
  - CARDIAC FAILURE CONGESTIVE [None]
  - CARDIOMYOPATHY [None]
  - GENERAL PHYSICAL HEALTH DETERIORATION [None]
